FAERS Safety Report 8188861-4 (Version None)
Quarter: 2012Q1

REPORT INFORMATION
  Report Type: 
  Country: None (occurrence: None)
  Receive Date: 20120306
  Receipt Date: 20120302
  Transmission Date: 20120608
  Serious: Yes (Other)
  Sender: FDA-Public Use
  Company Number: GB-B.I. PHARMACEUTICALS,INC./RIDGEFIELD-2012-UK-00323UK

PATIENT
  Age: 51 Year
  Sex: Female
  Weight: 72 kg

DRUGS (10)
  1. OMEPRAZOLE [Concomitant]
     Dates: start: 20111109
  2. FLUOXETINE HCL [Concomitant]
     Dates: start: 20111116
  3. PIROXICAM [Concomitant]
     Dates: start: 20111027
  4. ATORVASTATIN [Concomitant]
     Dates: start: 20111109
  5. FERROUS SULFATE TAB [Concomitant]
     Dates: start: 20111109
  6. ACETAMINOPHEN [Concomitant]
     Dates: start: 20111109
  7. AMITRIPTYLINE HCL [Concomitant]
     Dates: start: 20111109, end: 20111123
  8. PRAMIPEXOLE DIHYDROCHLORIDE [Suspect]
     Dates: start: 20111109
  9. DIPIPANONE [Concomitant]
     Dates: start: 20111109
  10. GABAPENTIN [Concomitant]
     Dates: start: 20111109

REACTIONS (2)
  - OBSESSIVE-COMPULSIVE DISORDER [None]
  - GAMBLING [None]
